FAERS Safety Report 11125877 (Version 1)
Quarter: 2015Q2

REPORT INFORMATION
  Report Type: Spontaneous
  Country: US (occurrence: US)
  Receive Date: 20150520
  Receipt Date: 20150520
  Transmission Date: 20150821
  Serious: Yes (Hospitalization, Other)
  Sender: FDA-Public Use
  Company Number: US-GLAXOSMITHKLINE-US2015GSK067586

PATIENT
  Age: 56 Year
  Sex: Female

DRUGS (2)
  1. ADVAIR DISKUS [Suspect]
     Active Substance: FLUTICASONE PROPIONATE\SALMETEROL XINAFOATE
     Indication: ASTHMA
     Dosage: UNK, U
     Route: 065
     Dates: start: 2006
  2. VENTOLIN HFA [Suspect]
     Active Substance: ALBUTEROL SULFATE
     Indication: ASTHMA
     Dosage: UNK, U
     Route: 065
     Dates: start: 2013

REACTIONS (10)
  - Cerebrovascular accident [Unknown]
  - Cardiac operation [Unknown]
  - Hospitalisation [Unknown]
  - Intensive care [Unknown]
  - Cardiac myxoma [Unknown]
  - Speech disorder [Not Recovered/Not Resolved]
  - Cardiac pacemaker insertion [Unknown]
  - Fall [Unknown]
  - Tooth loss [Unknown]
  - Cardiac disorder [Unknown]

NARRATIVE: CASE EVENT DATE: 201411
